FAERS Safety Report 10336503 (Version 1)
Quarter: 2014Q3

REPORT INFORMATION
  Report Type: Spontaneous
  Country: US (occurrence: US)
  Receive Date: 20140723
  Receipt Date: 20140723
  Transmission Date: 20150326
  Serious: Yes (Hospitalization, Other)
  Sender: FDA-Public Use
  Company Number: US-BRISTOL-MYERS SQUIBB COMPANY-20713640

PATIENT
  Age: 85 Year
  Sex: Female
  Weight: 54.42 kg

DRUGS (5)
  1. COUMADIN [Suspect]
     Active Substance: WARFARIN SODIUM
     Dosage: 30APR2014?2.5MG
  2. PERCOCET [Concomitant]
     Active Substance: ACETAMINOPHEN\OXYCODONE HYDROCHLORIDE
     Dosage: 1 DF : 10/325
  3. KLONOPIN [Concomitant]
     Active Substance: CLONAZEPAM
  4. CARDIZEM LA [Concomitant]
     Active Substance: DILTIAZEM HYDROCHLORIDE
  5. HYDROCHLOROTHIAZIDE. [Concomitant]
     Active Substance: HYDROCHLOROTHIAZIDE

REACTIONS (10)
  - Agitation [Unknown]
  - Fatigue [Unknown]
  - Emotional disorder [Unknown]
  - Transient ischaemic attack [Unknown]
  - Speech disorder [Unknown]
  - Hearing impaired [Unknown]
  - Gait disturbance [Unknown]
  - Myalgia [Unknown]
  - International normalised ratio abnormal [Unknown]
  - Headache [Unknown]
